FAERS Safety Report 21850244 (Version 2)
Quarter: 2023Q1

REPORT INFORMATION
  Report Type: Spontaneous
  Country: US (occurrence: None)
  Receive Date: 20230111
  Receipt Date: 20230208
  Transmission Date: 20230418
  Serious: Yes (Other)
  Sender: FDA-Public Use
  Company Number: 2023A004070

PATIENT
  Age: 21705 Day
  Sex: Male

DRUGS (15)
  1. SYMBICORT [Suspect]
     Active Substance: BUDESONIDE\FORMOTEROL FUMARATE DIHYDRATE
     Indication: Chronic obstructive pulmonary disease
     Dosage: 160 MCG., 2 PUFFS TWICE A DAY
     Route: 055
  2. SYMBICORT [Suspect]
     Active Substance: BUDESONIDE\FORMOTEROL FUMARATE DIHYDRATE
     Indication: Dyspnoea
     Dosage: 160 MCG., 2 PUFFS TWICE A DAY
     Route: 055
  3. SYMBICORT [Suspect]
     Active Substance: BUDESONIDE\FORMOTEROL FUMARATE DIHYDRATE
     Indication: Chronic obstructive pulmonary disease
     Dosage: 160 MCG-4.5 MCG/ACTUATION (INHALE 3 PUFF(S) TWICE A DAY)
     Route: 055
  4. SYMBICORT [Suspect]
     Active Substance: BUDESONIDE\FORMOTEROL FUMARATE DIHYDRATE
     Indication: Dyspnoea
     Dosage: 160 MCG-4.5 MCG/ACTUATION (INHALE 3 PUFF(S) TWICE A DAY)
     Route: 055
  5. AMLODIPINE [Concomitant]
     Active Substance: AMLODIPINE BESYLATE
  6. ATORVASTATIN [Concomitant]
     Active Substance: ATORVASTATIN
     Dosage: TAKE 1 TABLET(S) EVERY DAY BY ORAL ROUTE IN THE EVENING
     Route: 048
  7. DICLOFENAC [Concomitant]
     Active Substance: DICLOFENAC
     Route: 061
  8. DULOXETINE [Concomitant]
     Active Substance: DULOXETINE
  9. FLUOROURACIL [Concomitant]
     Active Substance: FLUOROURACIL
     Dosage: APPLY TOPICALLY TO FACE EVERY NIGHT AT BEDTIME AND WASH OFF IN THE MORNING FOR 2 WEEKS THEN TAKE ...
     Route: 061
  10. GABAPENTIN [Concomitant]
     Active Substance: GABAPENTIN
  11. LISINOPRIL [Concomitant]
     Active Substance: LISINOPRIL
     Dosage: TAKE 1 TABLET BY MOUTH DAILY
     Route: 048
  12. OXYCODONE [Concomitant]
     Active Substance: OXYCODONE
  13. ACETAMINOPHEN [Concomitant]
     Active Substance: ACETAMINOPHEN
  14. TIZANIDINE [Concomitant]
     Active Substance: TIZANIDINE
     Dosage: START TAKING 1 TABLET BY MOUTH EVERY NIGHT AT BEDTIME AS NEEDED FOR MUSCLE SPASMS THEN UP TO EVER...
     Route: 048
  15. HYDROCODONE [Concomitant]
     Active Substance: HYDROCODONE

REACTIONS (23)
  - Chronic hepatitis C [Unknown]
  - Lung carcinoma cell type unspecified stage 0 [Unknown]
  - Type IIa hyperlipidaemia [Unknown]
  - Deafness [Unknown]
  - Myocardial infarction [Unknown]
  - Visual impairment [Not Recovered/Not Resolved]
  - Memory impairment [Not Recovered/Not Resolved]
  - Major depression [Unknown]
  - Chronic idiopathic pain syndrome [Unknown]
  - Cataract [Unknown]
  - Essential hypertension [Unknown]
  - Carotid artery stenosis [Unknown]
  - Peripheral vascular disorder [Unknown]
  - Pancreatitis chronic [Unknown]
  - Glucose tolerance impaired [Unknown]
  - Electrocardiogram abnormal [Unknown]
  - Glaucoma [Unknown]
  - Fatigue [Unknown]
  - Anxiety [Unknown]
  - Hyperglycaemia [Unknown]
  - Product dose omission issue [Not Recovered/Not Resolved]
  - Intentional device misuse [Not Recovered/Not Resolved]
  - Product packaging quantity issue [Not Recovered/Not Resolved]

NARRATIVE: CASE EVENT DATE: 20220419
